FAERS Safety Report 7814238-4 (Version None)
Quarter: 2011Q4

REPORT INFORMATION
  Report Type: 
  Country: None (occurrence: None)
  Receive Date: 20111014
  Receipt Date: 20111005
  Transmission Date: 20120403
  Serious: Yes (Other)
  Sender: FDA-Public Use
  Company Number: JP-JNJFOC-20110208038

PATIENT
  Age: 9 Decade
  Sex: Female

DRUGS (3)
  1. YODEL [Concomitant]
     Route: 048
  2. MOTILIUM [Concomitant]
     Route: 065
  3. FENTANYL-100 [Suspect]
     Indication: CANCER PAIN
     Route: 062

REACTIONS (1)
  - DELIRIUM [None]
